FAERS Safety Report 23378343 (Version 1)
Quarter: 2024Q1

REPORT INFORMATION
  Report Type: Spontaneous
  Country: PL (occurrence: PL)
  Receive Date: 20240108
  Receipt Date: 20240108
  Transmission Date: 20240409
  Serious: Yes (Other)
  Sender: FDA-Public Use
  Company Number: PL-009507513-2312POL004884

PATIENT
  Age: 8 Year
  Sex: Female

DRUGS (9)
  1. CASPOFUNGIN [Interacting]
     Active Substance: CASPOFUNGIN
     Indication: Bronchopulmonary aspergillosis
     Dosage: UNK
     Route: 065
  2. VORICONAZOLE [Interacting]
     Active Substance: VORICONAZOLE
     Indication: Bronchopulmonary aspergillosis
     Dosage: UNK
     Route: 065
  3. TEICOPLANIN [Interacting]
     Active Substance: TEICOPLANIN
     Indication: Bronchopulmonary aspergillosis
     Dosage: UNK
     Route: 065
  4. TACROLIMUS [Interacting]
     Active Substance: TACROLIMUS
     Indication: Product used for unknown indication
     Dosage: UNK
     Route: 065
  5. PIPERACILLIN [Interacting]
     Active Substance: PIPERACILLIN
     Indication: Bronchopulmonary aspergillosis
     Dosage: UNK
     Route: 065
  6. MEROPENEM [Interacting]
     Active Substance: MEROPENEM
     Indication: Bronchopulmonary aspergillosis
     Dosage: UNK
     Route: 065
  7. CLARITHROMYCIN [Interacting]
     Active Substance: CLARITHROMYCIN
     Indication: Bronchopulmonary aspergillosis
     Dosage: UNK
     Route: 065
  8. VANCOMYCIN [Concomitant]
     Active Substance: VANCOMYCIN
     Indication: Device related infection
     Dosage: UNK
     Route: 065
  9. VANCOMYCIN [Concomitant]
     Active Substance: VANCOMYCIN
     Indication: Pseudomonas infection

REACTIONS (2)
  - Drug ineffective [Unknown]
  - Labelled drug-drug interaction issue [Unknown]
